FAERS Safety Report 7568355-7 (Version None)
Quarter: 2011Q2

REPORT INFORMATION
  Report Type: 
  Country: None (occurrence: None)
  Receive Date: 20110623
  Receipt Date: 20110603
  Transmission Date: 20111010
  Serious: Yes (Death, Congenital Anomaly)
  Sender: FDA-Public Use
  Company Number: A0932276A

PATIENT
  Sex: Male
  Weight: 3.3 kg

DRUGS (1)
  1. PAXIL [Suspect]
     Route: 064

REACTIONS (4)
  - TRANSPOSITION OF THE GREAT VESSELS [None]
  - PATENT DUCTUS ARTERIOSUS [None]
  - POST PROCEDURAL COMPLICATION [None]
  - DRUG EXPOSURE DURING PREGNANCY [None]
